FAERS Safety Report 12240852 (Version 3)
Quarter: 2016Q2

REPORT INFORMATION
  Report Type: Report from Study
  Country: US (occurrence: US)
  Receive Date: 20160406
  Receipt Date: 20160520
  Transmission Date: 20160815
  Serious: Yes (Death)
  Sender: FDA-Public Use
  Company Number: US-ASTRAZENECA-2016SE34792

PATIENT
  Age: 24878 Day
  Sex: Female

DRUGS (8)
  1. MIRALAX [Concomitant]
     Active Substance: POLYETHYLENE GLYCOL 3350
  2. LYRICA [Concomitant]
     Active Substance: PREGABALIN
  3. HYDROXYZINE [Concomitant]
     Active Substance: HYDROXYZINE\HYDROXYZINE HYDROCHLORIDE
  4. IRESSA [Suspect]
     Active Substance: GEFITINIB
     Indication: LUNG NEOPLASM MALIGNANT
     Route: 048
     Dates: start: 20160212
  5. MORPHINE SULFATE. [Concomitant]
     Active Substance: MORPHINE SULFATE
  6. PROCHLORPERAZINE. [Concomitant]
     Active Substance: PROCHLORPERAZINE
  7. DEXAMETHASONE. [Interacting]
     Active Substance: DEXAMETHASONE
     Route: 065
  8. COLACE [Concomitant]
     Active Substance: DOCUSATE SODIUM

REACTIONS (5)
  - Drug interaction [Unknown]
  - Rash [Unknown]
  - Nausea [Unknown]
  - Death [Fatal]
  - Spinal osteoarthritis [Unknown]

NARRATIVE: CASE EVENT DATE: 20160216
